FAERS Safety Report 16104023 (Version 1)
Quarter: 2019Q1

REPORT INFORMATION
  Report Type: Spontaneous
  Country: US (occurrence: US)
  Receive Date: 20190322
  Receipt Date: 20190322
  Transmission Date: 20190418
  Serious: Yes (Other)
  Sender: FDA-Public Use
  Company Number: US-ROCHE-2283253

PATIENT
  Sex: Female
  Weight: 54.03 kg

DRUGS (1)
  1. OCREVUS [Suspect]
     Active Substance: OCRELIZUMAB
     Indication: RELAPSING-REMITTING MULTIPLE SCLEROSIS
     Dosage: ONGOING:YES, /FEB/2019 RECEIVED SAME SUBSEQUENT DOSE
     Route: 065
     Dates: start: 201808

REACTIONS (5)
  - Fatigue [Unknown]
  - Weight loss poor [Unknown]
  - Fat tissue increased [Unknown]
  - Malaise [Unknown]
  - Relapsing-remitting multiple sclerosis [Unknown]
